FAERS Safety Report 8856657 (Version 1)
Quarter: 2012Q4

REPORT INFORMATION
  Report Type: Spontaneous
  Country: DE (occurrence: None)
  Receive Date: 20121019
  Receipt Date: 20121019
  Transmission Date: 20130627
  Serious: Yes (Death, Hospitalization)
  Sender: FDA-Public Use
  Company Number: INT_00136_2012

PATIENT

DRUGS (1)
  1. MEROPENEM (MEROPENEM) [Suspect]
     Indication: ABDOMINAL INFECTION
     Route: 042
     Dates: start: 20120629, end: 20120706

REACTIONS (3)
  - Pancreatitis [None]
  - Multi-organ failure [None]
  - Septic shock [None]
